FAERS Safety Report 5105557-3 (Version None)
Quarter: 2006Q3

REPORT INFORMATION
  Report Type: 
  Country: None (occurrence: None)
  Receive Date: 20060915
  Receipt Date: 20060905
  Transmission Date: 20061208
  Serious: Yes (Death)
  Sender: FDA-Public Use
  Company Number: US-JNJFOC-20060901838

PATIENT
  Age: 35 Year
  Sex: Female

DRUGS (2)
  1. ACETAMINOPHEN AND OXYCODONE HCL [Suspect]
     Indication: DRUG USE FOR UNKNOWN INDICATION
     Route: 048
  2. CARISOPRODOL [Suspect]
     Indication: DRUG USE FOR UNKNOWN INDICATION
     Route: 048

REACTIONS (4)
  - CARDIO-RESPIRATORY ARREST [None]
  - COMPLETED SUICIDE [None]
  - HEPATIC NECROSIS [None]
  - UPPER GASTROINTESTINAL HAEMORRHAGE [None]
